FAERS Safety Report 18942401 (Version 2)
Quarter: 2022Q3

REPORT INFORMATION
  Report Type: Report from Study
  Country: CN (occurrence: CN)
  Receive Date: 20210225
  Receipt Date: 20220701
  Transmission Date: 20221027
  Serious: Yes (Hospitalization)
  Sender: FDA-Public Use
  Company Number: CN-JNJFOC-20210226623

PATIENT
  Age: 78 Year
  Sex: Male
  Weight: 85.5 kg

DRUGS (15)
  1. PLACEBO [Suspect]
     Active Substance: UNSPECIFIED INGREDIENT
     Indication: Hormone-refractory prostate cancer
     Dosage: MOST RECENT DOSE 14-FEB-2021?MED KIT NUMBER 139-7102
     Route: 048
     Dates: start: 20201208
  2. NIFEDIPINE [Concomitant]
     Active Substance: NIFEDIPINE
     Indication: Hypertension
     Route: 048
     Dates: start: 2018
  3. ACARBOSE [Concomitant]
     Active Substance: ACARBOSE
     Indication: Hyperglycaemia
     Route: 048
     Dates: start: 2018
  4. METFORMIN HYDROCHLORIDE [Concomitant]
     Active Substance: METFORMIN HYDROCHLORIDE
     Indication: Hyperglycaemia
     Route: 048
     Dates: start: 2018
  5. PITAVASTATIN CALCIUM [Concomitant]
     Active Substance: PITAVASTATIN CALCIUM
     Indication: Hypercholesterolaemia
     Route: 048
     Dates: start: 2018
  6. METOPROLOL TARTRATE [Concomitant]
     Active Substance: METOPROLOL TARTRATE
     Indication: Hypertension
     Route: 048
     Dates: start: 2018
  7. DESLORATADINE [Concomitant]
     Active Substance: DESLORATADINE
     Indication: Rash
     Dates: start: 20201225, end: 20201225
  8. DESLORATADINE [Concomitant]
     Active Substance: DESLORATADINE
     Dates: start: 20201226, end: 20201231
  9. DIPHENHYDRAMINE HYDROCHLORIDE [Concomitant]
     Active Substance: DIPHENHYDRAMINE HYDROCHLORIDE
     Indication: Rash
     Dates: start: 20201225, end: 20201225
  10. DEXAMETHASONE SODIUM PHOSPHATE [Concomitant]
     Active Substance: DEXAMETHASONE SODIUM PHOSPHATE
     Indication: Rash
     Dates: start: 20201225, end: 20201225
  11. AZITHROMYCIN [Concomitant]
     Active Substance: AZITHROMYCIN
     Indication: Rash
     Dates: start: 20201226, end: 20201231
  12. EPINASTINE HYDROCHLORIDE [Concomitant]
     Active Substance: EPINASTINE HYDROCHLORIDE
     Indication: Rash
     Dates: start: 20201226, end: 20210103
  13. HYDROCHLOROTHIAZIDE\IRBESARTAN [Concomitant]
     Active Substance: HYDROCHLOROTHIAZIDE\IRBESARTAN
     Indication: Hypertension
     Dosage: HALF A TABLET (75MG/6.25MG)
     Route: 048
     Dates: start: 20210506, end: 20210512
  14. HYDROCHLOROTHIAZIDE\IRBESARTAN [Concomitant]
     Active Substance: HYDROCHLOROTHIAZIDE\IRBESARTAN
     Dosage: HALF A TABLET (150MG/12.5MG)
     Route: 048
     Dates: start: 20210910
  15. ASPIRIN [Concomitant]
     Active Substance: ASPIRIN
     Indication: Thrombosis prophylaxis
     Route: 048
     Dates: start: 2004

REACTIONS (1)
  - Mixed deafness [Recovered/Resolved]

NARRATIVE: CASE EVENT DATE: 20210118
